FAERS Safety Report 23982304 (Version 1)
Quarter: 2024Q2

REPORT INFORMATION
  Report Type: Spontaneous
  Country: FR (occurrence: FR)
  Receive Date: 20240617
  Receipt Date: 20240617
  Transmission Date: 20240716
  Serious: Yes (Hospitalization)
  Sender: FDA-Public Use
  Company Number: FR-B.Braun Medical Inc.-2158215

PATIENT
  Age: 33 Year
  Sex: Male

DRUGS (9)
  1. ACETAMINOPHEN [Suspect]
     Active Substance: ACETAMINOPHEN
     Indication: Pain
  2. PRIMPERAN [Suspect]
     Active Substance: METOCLOPRAMIDE HYDROCHLORIDE
  3. DAUNORUBICIN [Suspect]
     Active Substance: DAUNORUBICIN
  4. FASTURTEC [Suspect]
     Active Substance: RASBURICASE
  5. CYTARABINE [Suspect]
     Active Substance: CYTARABINE
  6. VALACYCLOVIR HYDROCHLORIDE [Suspect]
     Active Substance: VALACYCLOVIR HYDROCHLORIDE
  7. TRAMADOL HYDROCHLORIDE [Suspect]
     Active Substance: TRAMADOL HYDROCHLORIDE
  8. ONDANSETRON [Suspect]
     Active Substance: ONDANSETRON
  9. POSACONAZOLE [Suspect]
     Active Substance: POSACONAZOLE

REACTIONS (1)
  - Methaemoglobinaemia [Recovered/Resolved]
